FAERS Safety Report 12507265 (Version 1)
Quarter: 2016Q2

REPORT INFORMATION
  Report Type: Spontaneous
  Country: TW (occurrence: TW)
  Receive Date: 20160629
  Receipt Date: 20160629
  Transmission Date: 20160815
  Serious: Yes (Death, Hospitalization, Other)
  Sender: FDA-Public Use
  Company Number: TW-BAUSCH-BL-2016-014929

PATIENT
  Age: 50 Year
  Sex: Male

DRUGS (3)
  1. PREDNISOLONE. [Suspect]
     Active Substance: PREDNISOLONE
     Indication: NEPHROTIC SYNDROME
     Route: 065
     Dates: start: 201303
  2. MESALAMINE. [Concomitant]
     Active Substance: MESALAMINE
     Indication: COLITIS ULCERATIVE
     Route: 042
  3. MESALAMINE. [Concomitant]
     Active Substance: MESALAMINE

REACTIONS (5)
  - Sepsis [Fatal]
  - Infectious colitis [Unknown]
  - Renal impairment [Unknown]
  - Colitis [Unknown]
  - Large intestine perforation [Unknown]
